FAERS Safety Report 4294139-1 (Version None)
Quarter: 2004Q1

REPORT INFORMATION
  Report Type: 
  Country: None (occurrence: None)
  Receive Date: 20040211
  Receipt Date: 20040127
  Transmission Date: 20041129
  Serious: Yes (Hospitalization)
  Sender: FDA-Public Use
  Company Number: SX04010012

PATIENT
  Age: 73 Year
  Sex: Female
  Weight: 51.7101 kg

DRUGS (8)
  1. XOPENEX [Suspect]
     Indication: ASTHMA
     Dosage: 0.63 MG/ML INHALATION, 1/2 Q4H
     Route: 055
     Dates: start: 20020702
  2. PREDNISONE [Concomitant]
  3. REMERON [Concomitant]
  4. ATROVENT [Concomitant]
  5. PROVENTIL [Concomitant]
  6. ATIVAN [Concomitant]
  7. ADVAIR DISKUS 100/50 [Concomitant]
  8. OXYGEN [Concomitant]

REACTIONS (7)
  - BURNING SENSATION [None]
  - DYSPNOEA [None]
  - FEELING HOT [None]
  - FEELING HOT AND COLD [None]
  - HEADACHE [None]
  - MALAISE [None]
  - TREMOR [None]
